FAERS Safety Report 18563887 (Version 1)
Quarter: 2020Q4

REPORT INFORMATION
  Report Type: Spontaneous
  Country: US (occurrence: US)
  Receive Date: 20201201
  Receipt Date: 20201201
  Transmission Date: 20210114
  Serious: Yes (Hospitalization)
  Sender: FDA-Public Use
  Company Number: US-STRIDES ARCOLAB LIMITED-2020SP014664

PATIENT
  Age: 43 Year
  Sex: Female

DRUGS (12)
  1. METRONIDAZOLE. [Suspect]
     Active Substance: METRONIDAZOLE
     Dosage: 15 MILLIGRAM (STEP 8)
     Route: 042
  2. METRONIDAZOLE. [Suspect]
     Active Substance: METRONIDAZOLE
     Dosage: 0.5 MILLIGRAM (STEP 5)
     Route: 042
  3. METRONIDAZOLE. [Suspect]
     Active Substance: METRONIDAZOLE
     Dosage: AT A LOWER STARTING DOSE OF 0.15MG AND AT A REDUCED INFUSION RATE
     Route: 042
  4. BORIC ACID [Concomitant]
     Active Substance: BORIC ACID
     Dosage: UNK
     Route: 065
  5. METRONIDAZOLE. [Suspect]
     Active Substance: METRONIDAZOLE
     Indication: TRICHOMONIASIS
     Dosage: 500 MILLIGRAM, BID
     Route: 048
  6. METRONIDAZOLE. [Suspect]
     Active Substance: METRONIDAZOLE
     Dosage: 0.05 MILLIGRAM (STEP 3)
     Route: 042
  7. METRONIDAZOLE. [Suspect]
     Active Substance: METRONIDAZOLE
     Dosage: 1.5 MILLIGRAM (STEP 6)
     Route: 042
  8. BORIC ACID [Concomitant]
     Active Substance: BORIC ACID
     Indication: TRICHOMONIASIS
     Dosage: UNK
     Route: 065
  9. METRONIDAZOLE. [Suspect]
     Active Substance: METRONIDAZOLE
     Dosage: 0.005 MILLIGRAM (STEP 1)
     Route: 042
  10. METRONIDAZOLE. [Suspect]
     Active Substance: METRONIDAZOLE
     Dosage: 0.015 MILLIGRAM (STEP 2)
     Route: 042
  11. METRONIDAZOLE. [Suspect]
     Active Substance: METRONIDAZOLE
     Dosage: 5 MILLIGRAM (STEP 7)
     Route: 042
  12. METRONIDAZOLE. [Suspect]
     Active Substance: METRONIDAZOLE
     Dosage: 30 MILLIGRAM (STEP 9)
     Route: 042

REACTIONS (7)
  - Salivary hypersecretion [Recovered/Resolved]
  - Vomiting [Recovered/Resolved]
  - Feeling hot [Recovered/Resolved]
  - Dyspnoea [Recovered/Resolved]
  - Skin burning sensation [Recovered/Resolved]
  - Pruritus [Recovered/Resolved]
  - Urticaria [Recovered/Resolved]
